FAERS Safety Report 5315630-2 (Version None)
Quarter: 2007Q2

REPORT INFORMATION
  Report Type: 
  Country: None (occurrence: None)
  Receive Date: 20070430
  Receipt Date: 20070430
  Transmission Date: 20071010
  Serious: Yes (Hospitalization)
  Sender: FDA-Public Use
  Company Number: None

PATIENT
  Sex: Female
  Weight: 46 kg

DRUGS (13)
  1. GEMCITABINE [Suspect]
     Indication: PANCREATIC CARCINOMA METASTATIC
     Dosage: 1000MG IV D1. D8. D15 / 28 D CYCLE
     Route: 042
     Dates: start: 20061208, end: 20070202
  2. GEMCITABINE [Suspect]
     Indication: PANCREATIC CARCINOMA METASTATIC
     Dosage: 750MG IV D1, D8, D15 / 28 DAY CYCLE
     Route: 042
     Dates: start: 20070209, end: 20070413
  3. BEVACIZUMAB (10MG/M2) D1,D15/28 D CYCLE [Suspect]
     Indication: PANCREATIC CARCINOMA METASTATIC
     Dosage: 1000 MG IV D1, D15 / 28 DAY CYCLE
     Route: 042
     Dates: start: 20061208, end: 20070406
  4. ERLOTINIB (100MG/M2) D1-D28/ 28D CYCLE [Suspect]
     Indication: PANCREATIC CARCINOMA METASTATIC
     Dosage: 100 MG IV D1 - D28 / 28 DAY CYCLE
     Route: 042
     Dates: start: 20061208, end: 20070425
  5. AMBIEN [Concomitant]
  6. COMPAZINE [Concomitant]
  7. CREON [Concomitant]
  8. LIPITOR [Concomitant]
  9. PRILOSEC [Concomitant]
  10. TYLENOL [Concomitant]
  11. XANAX [Concomitant]
  12. ZOFRAN [Concomitant]
  13. ACETYLSALICYLIC ACID SRT [Concomitant]

REACTIONS (1)
  - PNEUMONIA [None]
